FAERS Safety Report 9664107 (Version 2)
Quarter: 2013Q4

REPORT INFORMATION
  Report Type: Spontaneous
  Country: JP (occurrence: JP)
  Receive Date: 20131101
  Receipt Date: 20131125
  Transmission Date: 20140711
  Serious: Yes (Other)
  Sender: FDA-Public Use
  Company Number: JP-SA-2013SA109442

PATIENT
  Age: 64 Year
  Sex: Female
  Weight: 67 kg

DRUGS (12)
  1. TAXOTERE [Suspect]
     Indication: SQUAMOUS CELL CARCINOMA OF THE TONGUE
     Dosage: 20 MG/BODY, INTRAARTERIAL INFUSION
     Route: 013
     Dates: start: 20121102, end: 20121102
  2. TAXOTERE [Suspect]
     Indication: SQUAMOUS CELL CARCINOMA OF THE TONGUE
     Route: 013
     Dates: start: 20121130, end: 20121130
  3. TAXOTERE [Suspect]
     Indication: SQUAMOUS CELL CARCINOMA OF THE TONGUE
     Route: 013
     Dates: start: 20130118, end: 20130121
  4. CISPLATIN [Suspect]
     Indication: SQUAMOUS CELL CARCINOMA OF THE TONGUE
     Dosage: INTRAARTERIAL INFUSION
     Route: 013
     Dates: start: 20121102, end: 20121102
  5. CISPLATIN [Suspect]
     Indication: SQUAMOUS CELL CARCINOMA OF THE TONGUE
     Route: 013
     Dates: start: 20121130, end: 20121130
  6. CISPLATIN [Suspect]
     Indication: SQUAMOUS CELL CARCINOMA OF THE TONGUE
     Route: 013
     Dates: start: 20130118, end: 20130118
  7. FLUOROURACIL [Concomitant]
     Indication: SQUAMOUS CELL CARCINOMA OF THE TONGUE
     Route: 013
     Dates: start: 20121103, end: 20121105
  8. FLUOROURACIL [Concomitant]
     Indication: SQUAMOUS CELL CARCINOMA OF THE TONGUE
     Route: 013
     Dates: start: 20121201, end: 20121203
  9. FLUOROURACIL [Concomitant]
     Indication: SQUAMOUS CELL CARCINOMA OF THE TONGUE
     Route: 013
     Dates: start: 20130119, end: 20130121
  10. DETOXOL [Concomitant]
     Indication: PREMEDICATION
     Dates: start: 20121102, end: 20121102
  11. DETOXOL [Concomitant]
     Indication: PREMEDICATION
     Dates: start: 20121130, end: 20121130
  12. DETOXOL [Concomitant]
     Indication: PREMEDICATION
     Dates: start: 20130118, end: 20130118

REACTIONS (3)
  - Arterial rupture [Unknown]
  - Tongue necrosis [Recovering/Resolving]
  - Pain [Recovering/Resolving]
